FAERS Safety Report 8817912 (Version 1)
Quarter: 2012Q4

REPORT INFORMATION
  Report Type: 
  Country: BR (occurrence: BR)
  Receive Date: 20121004
  Receipt Date: 20121004
  Transmission Date: 20130627
  Serious: Yes (Hospitalization)
  Sender: FDA-Public Use
  Company Number: BR-B.I. PHARMACEUTICALS,INC./RIDGEFIELD-2012-BR-00991BR

PATIENT
  Age: 76 Year
  Sex: Male

DRUGS (1)
  1. SECOTEX [Suspect]

REACTIONS (2)
  - Cerebrovascular accident [Recovered/Resolved]
  - Syncope [Recovered/Resolved]
